FAERS Safety Report 11929376 (Version 2)
Quarter: 2019Q2

REPORT INFORMATION
  Report Type: Spontaneous
  Country: PL (occurrence: PL)
  Receive Date: 20160120
  Receipt Date: 20190404
  Transmission Date: 20190711
  Serious: Yes (Death, Hospitalization, Other)
  Sender: FDA-Public Use
  Company Number: PL-ACCORD-037075

PATIENT
  Age: 58 Year
  Sex: Female

DRUGS (6)
  1. TACROLIMUS. [Suspect]
     Active Substance: TACROLIMUS
     Indication: LUNG TRANSPLANT
  2. PREDNISONE. [Suspect]
     Active Substance: PREDNISONE
     Indication: LUNG TRANSPLANT
  3. PANTOPRAZOLE [Suspect]
     Active Substance: PANTOPRAZOLE
     Indication: PRODUCT USED FOR UNKNOWN INDICATION
  4. MYCOPHENOLIC ACID. [Suspect]
     Active Substance: MYCOPHENOLIC ACID
     Indication: LUNG TRANSPLANT
  5. CICLOSPORIN [Suspect]
     Active Substance: CYCLOSPORINE
     Indication: LUNG TRANSPLANT
  6. METHYLPREDNISOLONE. [Suspect]
     Active Substance: METHYLPREDNISOLONE
     Indication: LUNG TRANSPLANT

REACTIONS (18)
  - Moraxella infection [Unknown]
  - Pseudomonas infection [Unknown]
  - Candida infection [Unknown]
  - Renal failure [Unknown]
  - Cytomegalovirus infection [Unknown]
  - Diabetes mellitus [Unknown]
  - Bronchitis [Unknown]
  - Escherichia sepsis [Fatal]
  - Klebsiella infection [Unknown]
  - Acinetobacter infection [Unknown]
  - Leukopenia [Unknown]
  - Corynebacterium infection [Unknown]
  - Ear infection [Unknown]
  - Aspergillus infection [Unknown]
  - Escherichia urinary tract infection [Unknown]
  - Proteus infection [Unknown]
  - Hypoproteinaemia [Unknown]
  - Sepsis [Fatal]
